FAERS Safety Report 8370065 (Version 2)
Quarter: 2013Q1

REPORT INFORMATION
  Report Type: Report from Study
  Country: US (occurrence: US)
  Receive Date: 20120128
  Receipt Date: 20130129
  Transmission Date: 20140127
  Serious: No
  Sender: FDA-Public Use
  Company Number: US-ABBOTT-11P-163-0724287-00

PATIENT
  Age: 59 Year
  Sex: Female

DRUGS (14)
  1. HUMIRA 40 MG/0.8 ML PEN [Suspect]
     Indication: PSORIATIC ARTHROPATHY
     Dates: start: 201012
  2. NORVASC [Concomitant]
     Indication: BLOOD PRESSURE
  3. HCTZ [Concomitant]
     Indication: BLOOD PRESSURE
  4. ATENOLOL [Concomitant]
     Indication: BLOOD PRESSURE
  5. SULFASALAZINE [Concomitant]
     Indication: PSORIATIC ARTHROPATHY
  6. METHOTREXATE [Concomitant]
     Indication: ARTHRITIS
  7. FOLIC ACID [Concomitant]
     Indication: PRODUCT USED FOR UNKNOWN INDICATION
  8. VOLTAREN [Concomitant]
     Indication: ARTHRITIS
     Dosage: GEL 1G TO KNEES QUARTER GRAM TO KNUCKLES
  9. TYLENOL W/CODEINE NO. 2 [Concomitant]
     Indication: PAIN
  10. FEMARA [Concomitant]
     Indication: BREAST CANCER
  11. XYZAL [Concomitant]
     Indication: SEASONAL ALLERGY
  12. LIPITOR [Concomitant]
     Indication: BLOOD TRIGLYCERIDES INCREASED
     Dosage: ONCE AT BEDTIME
  13. FLONASE [Concomitant]
     Indication: PHARYNGEAL DISORDER
     Dosage: SPRAY
     Route: 045
  14. ECONAZOLE NITRATE [Concomitant]
     Indication: FUNGAL SKIN INFECTION
     Dosage: UNDER BREAST ONCE DAILY

REACTIONS (20)
  - Migraine [Recovering/Resolving]
  - Fibromyalgia [Not Recovered/Not Resolved]
  - Injection site reaction [Not Recovered/Not Resolved]
  - Injection site reaction [Not Recovered/Not Resolved]
  - Injection site erythema [Not Recovered/Not Resolved]
  - Injection site pruritus [Not Recovered/Not Resolved]
  - Injection site nodule [Not Recovered/Not Resolved]
  - Musculoskeletal pain [Unknown]
  - Blood triglycerides increased [Unknown]
  - Oral candidiasis [Recovered/Resolved]
  - Dry mouth [Unknown]
  - Dry throat [Unknown]
  - Dysphagia [Unknown]
  - Temporomandibular joint syndrome [Unknown]
  - Back pain [Unknown]
  - Mass [Unknown]
  - Blood potassium decreased [Unknown]
  - Sleep apnoea syndrome [Unknown]
  - Fungal skin infection [Recovering/Resolving]
  - Autoimmune thyroiditis [Unknown]
